FAERS Safety Report 22050832 (Version 1)
Quarter: 2023Q1

REPORT INFORMATION
  Report Type: Spontaneous
  Country: PT (occurrence: PT)
  Receive Date: 20230301
  Receipt Date: 20230301
  Transmission Date: 20230418
  Serious: Yes (Disabling)
  Sender: FDA-Public Use
  Company Number: PT-NALPROPION PHARMACEUTICALS INC.-2021-013089

PATIENT
  Age: 45 Year
  Sex: Female
  Weight: 76 kg

DRUGS (1)
  1. BUPROPION HYDROCHLORIDE\NALTREXONE HYDROCHLORIDE [Suspect]
     Active Substance: BUPROPION HYDROCHLORIDE\NALTREXONE HYDROCHLORIDE
     Indication: Weight control
     Dosage: STRENGTH 8/90 MG, 1 TABLET IN THE MORNING
     Route: 048
     Dates: start: 20210511, end: 20210517

REACTIONS (4)
  - Glassy eyes [Recovered/Resolved]
  - Confusional state [Recovered/Resolved]
  - Dizziness [Recovering/Resolving]
  - Constipation [Recovering/Resolving]

NARRATIVE: CASE EVENT DATE: 20210511
